FAERS Safety Report 14124969 (Version 1)
Quarter: 2017Q4

REPORT INFORMATION
  Report Type: Spontaneous
  Country: CH (occurrence: CH)
  Receive Date: 20171025
  Receipt Date: 20171025
  Transmission Date: 20180321
  Serious: Yes (Life-Threatening)
  Sender: FDA-Public Use
  Company Number: CH-LPDUSPRD-20171418

PATIENT
  Age: 38 Year
  Sex: Female

DRUGS (2)
  1. CARBIMAZOLE [Concomitant]
     Active Substance: CARBIMAZOLE
     Dosage: UNKNOWN
     Route: 065
  2. FERINJECT [Suspect]
     Active Substance: FERRIC CARBOXYMALTOSE
     Dosage: 500 MG
     Route: 041
     Dates: start: 20170803, end: 20170803

REACTIONS (1)
  - Type III immune complex mediated reaction [Unknown]

NARRATIVE: CASE EVENT DATE: 20170803
